FAERS Safety Report 9062340 (Version 21)
Quarter: 2014Q4

REPORT INFORMATION
  Report Type: Spontaneous
  Country: US (occurrence: US)
  Receive Date: 20130213
  Receipt Date: 20141022
  Transmission Date: 20150529
  Serious: Yes (Hospitalization, Other)
  Sender: FDA-Public Use
  Company Number: US-GLAXOSMITHKLINE-A1002302A

PATIENT
  Age: 6 Year
  Sex: Female
  Weight: 18 kg

DRUGS (18)
  1. REVATIO [Concomitant]
     Active Substance: SILDENAFIL CITRATE
  2. FLOLAN [Suspect]
     Active Substance: EPOPROSTENOL SODIUM
     Dates: start: 20081111
  3. FLOLAN [Suspect]
     Active Substance: EPOPROSTENOL SODIUM
     Dates: start: 20081111
  4. LASIX [Concomitant]
     Active Substance: FUROSEMIDE
     Route: 048
  5. TRACLEER [Suspect]
     Active Substance: BOSENTAN\BOSENTAN MONOHYDRATE
     Indication: PRODUCT USED FOR UNKNOWN INDICATION
     Dosage: DOSE TRACLEER STOPPED 14 OCTOBER 2012. RESUMED AT REDUCED DOSE OF 31.25 MG BID ON 28 NOVEMBER 2012.
     Route: 065
  6. FLOLAN [Suspect]
     Active Substance: EPOPROSTENOL SODIUM
     Indication: HEART DISEASE CONGENITAL
     Dates: start: 20081111
  7. FLOLAN [Suspect]
     Active Substance: EPOPROSTENOL SODIUM
     Dates: start: 20081111
  8. FLOLAN [Suspect]
     Active Substance: EPOPROSTENOL SODIUM
     Dates: start: 20081111
  9. FLOLAN [Suspect]
     Active Substance: EPOPROSTENOL SODIUM
     Dates: start: 20081111
  10. FLOLAN [Suspect]
     Active Substance: EPOPROSTENOL SODIUM
     Indication: COR PULMONALE CHRONIC
     Dosage: 54 NG/KG/MIN (CONCENTRATION 15,000 NG/ML; 1.5 MG VIAL STRENGTH).41.5 NG/KG/MIN, CONCENTRATION 1[...]
     Route: 042
     Dates: start: 20081111
  11. FLOLAN [Suspect]
     Active Substance: EPOPROSTENOL SODIUM
     Dates: start: 20081111
  12. FLOLAN [Suspect]
     Active Substance: EPOPROSTENOL SODIUM
     Dates: start: 20081111
  13. DIGOXIN. [Concomitant]
     Active Substance: DIGOXIN
     Route: 048
  14. FLOLAN [Suspect]
     Active Substance: EPOPROSTENOL SODIUM
     Dates: start: 20081111
  15. COUMADIN [Concomitant]
     Active Substance: WARFARIN SODIUM
     Route: 048
  16. FLOLAN [Suspect]
     Active Substance: EPOPROSTENOL SODIUM
     Dates: start: 20081111
  17. FLOLAN [Suspect]
     Active Substance: EPOPROSTENOL SODIUM
     Dates: start: 20081111
  18. ZANTAC [Concomitant]
     Active Substance: RANITIDINE HYDROCHLORIDE
     Route: 048

REACTIONS (20)
  - Pneumonia [Unknown]
  - Respiratory tract infection [Recovered/Resolved]
  - Ear infection [Recovered/Resolved]
  - Medical device complication [Recovered/Resolved]
  - Application site odour [Recovered/Resolved]
  - Dyspnoea [Unknown]
  - Viral infection [Recovered/Resolved]
  - Catheterisation cardiac [Recovered/Resolved]
  - Injection site discolouration [Recovered/Resolved]
  - Sinusitis [Recovered/Resolved]
  - Upper respiratory tract infection [Recovered/Resolved]
  - Pain in jaw [Recovered/Resolved]
  - Device related infection [Recovered/Resolved]
  - Clostridium difficile infection [Unknown]
  - Pyrexia [Recovered/Resolved]
  - Hypoxia [Unknown]
  - Investigation [Recovered/Resolved]
  - Liver function test abnormal [Recovered/Resolved]
  - Alanine aminotransferase increased [Recovered/Resolved]
  - Cystitis [Unknown]

NARRATIVE: CASE EVENT DATE: 2013
